FAERS Safety Report 15916313 (Version 3)
Quarter: 2019Q2

REPORT INFORMATION
  Report Type: Spontaneous
  Country: US (occurrence: US)
  Receive Date: 20190204
  Receipt Date: 20190410
  Transmission Date: 20190711
  Serious: Yes (Other)
  Sender: FDA-Public Use
  Company Number: US-ASTRAZENECA-2018SF14708

PATIENT
  Age: 24076 Day
  Sex: Female

DRUGS (33)
  1. LEVOTHYROXINE. [Concomitant]
     Active Substance: LEVOTHYROXINE
  2. SIMVASTATIN. [Concomitant]
     Active Substance: SIMVASTATIN
  3. ONDANSETRON [Concomitant]
     Active Substance: ONDANSETRON
  4. OXYCODONE-ACETAMINOPHEN [Concomitant]
     Active Substance: ACETAMINOPHEN\OXYCODONE HYDROCHLORIDE
  5. DONEPEZIL. [Concomitant]
     Active Substance: DONEPEZIL
  6. ALENDRONATE [Concomitant]
     Active Substance: ALENDRONATE SODIUM
  7. LIPITOR [Concomitant]
     Active Substance: ATORVASTATIN CALCIUM
  8. PROAIR HFA [Concomitant]
     Active Substance: ALBUTEROL SULFATE
  9. OMEPRAZOLE. [Suspect]
     Active Substance: OMEPRAZOLE
     Indication: GASTROOESOPHAGEAL REFLUX DISEASE
     Route: 048
     Dates: start: 2010, end: 2014
  10. OMEPRAZOLE. [Suspect]
     Active Substance: OMEPRAZOLE
     Indication: GASTROOESOPHAGEAL REFLUX DISEASE
     Dosage: OMEPRAZOLE DR
     Route: 048
     Dates: start: 20100804
  11. AZITHROMYCIN ANHYDROUS. [Concomitant]
     Active Substance: AZITHROMYCIN ANHYDROUS
  12. ZEMPLAR [Concomitant]
     Active Substance: PARICALCITOL
  13. NEXIUM [Suspect]
     Active Substance: ESOMEPRAZOLE MAGNESIUM
     Indication: GASTROOESOPHAGEAL REFLUX DISEASE
     Dosage: 2010, 2014-2015- 40MG DAILY
     Route: 048
     Dates: start: 2008, end: 2015
  14. NEXIUM [Suspect]
     Active Substance: ESOMEPRAZOLE MAGNESIUM
     Indication: GASTROOESOPHAGEAL REFLUX DISEASE
     Dosage: ESOMEPRAZOLE MAG DR
     Route: 048
     Dates: start: 20150218
  15. CYCLOBENZAPRINE. [Concomitant]
     Active Substance: CYCLOBENZAPRINE
  16. ACYCLOVIR. [Concomitant]
     Active Substance: ACYCLOVIR
  17. TYLENOL [Concomitant]
     Active Substance: ACETAMINOPHEN
  18. CIPROFLOXACIN HYDROCHLORIDE. [Concomitant]
     Active Substance: CIPROFLOXACIN HYDROCHLORIDE
  19. OMEPRAZOLE. [Suspect]
     Active Substance: OMEPRAZOLE
     Indication: GASTROOESOPHAGEAL REFLUX DISEASE
     Dosage: PRILOSEC- EVERYDAY OR ONCE PER DAY
     Route: 048
     Dates: start: 20100907
  20. DILTIAZEM. [Concomitant]
     Active Substance: DILTIAZEM
  21. TRAMADOL. [Concomitant]
     Active Substance: TRAMADOL
  22. DIPHENOXYLATE [Concomitant]
     Active Substance: DIPHENOXYLATE
  23. PHOSLO [Concomitant]
     Active Substance: CALCIUM ACETATE
  24. NEXIUM [Suspect]
     Active Substance: ESOMEPRAZOLE MAGNESIUM
     Indication: GASTROOESOPHAGEAL REFLUX DISEASE
     Route: 048
     Dates: start: 20100515
  25. COZAAR [Concomitant]
     Active Substance: LOSARTAN POTASSIUM
  26. ALBUTEROL. [Concomitant]
     Active Substance: ALBUTEROL
  27. PROCHLORPERAZINE. [Concomitant]
     Active Substance: PROCHLORPERAZINE
  28. GABAPENTIN. [Concomitant]
     Active Substance: GABAPENTIN
  29. HEPARIN [Concomitant]
     Active Substance: HEPARIN SODIUM
  30. PROCHLORPERAZINE. [Concomitant]
     Active Substance: PROCHLORPERAZINE
  31. PREDNISONE. [Concomitant]
     Active Substance: PREDNISONE
  32. ATORVASTATIN [Concomitant]
     Active Substance: ATORVASTATIN
  33. DARVOCET [Concomitant]
     Active Substance: ACETAMINOPHEN\PROPOXYPHENE HYDROCHLORIDE

REACTIONS (6)
  - Acute kidney injury [Unknown]
  - End stage renal disease [Not Recovered/Not Resolved]
  - Renal failure [Unknown]
  - Hyperparathyroidism secondary [Unknown]
  - Chronic kidney disease [Not Recovered/Not Resolved]
  - Nephrogenic anaemia [Unknown]

NARRATIVE: CASE EVENT DATE: 20100902
